FAERS Safety Report 11428122 (Version 2)
Quarter: 2015Q4

REPORT INFORMATION
  Report Type: Spontaneous
  Country: JP (occurrence: JP)
  Receive Date: 20150828
  Receipt Date: 20151006
  Transmission Date: 20160304
  Serious: Yes (Other)
  Sender: FDA-Public Use
  Company Number: JP-HOSPIRA-1163696

PATIENT
  Age: 13 Year
  Sex: Female
  Weight: 55 kg

DRUGS (7)
  1. FENTANYL CITRATE. [Concomitant]
     Active Substance: FENTANYL CITRATE
     Indication: PRODUCT USED FOR UNKNOWN INDICATION
     Route: 042
     Dates: start: 20101108
  2. ULTIVA [Concomitant]
     Active Substance: REMIFENTANIL HYDROCHLORIDE
     Indication: GENERAL ANAESTHESIA
     Dosage: MAINTENANCE 0.2-0.5 MCG/KG/MIN
     Route: 041
     Dates: start: 20101108, end: 20101108
  3. VALPROIC ACID. [Suspect]
     Active Substance: VALPROIC ACID
     Indication: SEIZURE
  4. PRECEDEX [Suspect]
     Active Substance: DEXMEDETOMIDINE HYDROCHLORIDE
     Indication: GENERAL ANAESTHESIA
     Dosage: MAINTENANCE 1-6 MCG/KG/HR
     Route: 041
     Dates: start: 20101108, end: 20101108
  5. ULTIVA [Concomitant]
     Active Substance: REMIFENTANIL HYDROCHLORIDE
     Indication: GENERAL ANAESTHESIA
     Dosage: INDUCTION 0.3 MCG/KG/MIN
     Route: 041
     Dates: start: 20101108, end: 20101108
  6. ESLAX [Concomitant]
     Active Substance: ROCURONIUM BROMIDE
     Indication: PRODUCT USED FOR UNKNOWN INDICATION
     Route: 041
     Dates: start: 20101108, end: 20101108
  7. PRECEDEX [Suspect]
     Active Substance: DEXMEDETOMIDINE HYDROCHLORIDE
     Indication: GENERAL ANAESTHESIA
     Dosage: INDUCTION 0.5 MCG/KG OVER 20 MINS
     Route: 041
     Dates: start: 20101108, end: 20101108

REACTIONS (4)
  - Nerve conduction studies abnormal [Recovered/Resolved]
  - Drug interaction [Unknown]
  - Hypotension [Recovered/Resolved]
  - Drug administered to patient of inappropriate age [Recovered/Resolved]

NARRATIVE: CASE EVENT DATE: 20101108
